FAERS Safety Report 9051950 (Version 1)
Quarter: 2013Q1

REPORT INFORMATION
  Report Type: Report from Study
  Country: CA (occurrence: CA)
  Receive Date: 20130207
  Receipt Date: 20130207
  Transmission Date: 20140127
  Serious: Yes (Hospitalization, Other)
  Sender: FDA-Public Use
  Company Number: CA-JNJFOC-20120912188

PATIENT
  Age: 58 None
  Sex: Female
  Weight: 50 kg

DRUGS (2)
  1. REMICADE [Suspect]
     Indication: RHEUMATOID ARTHRITIS
     Dosage: FOR 52 WEEKS??STOP DATE AUG/SEP-2012
     Route: 042
     Dates: start: 20111104, end: 201208
  2. REMICADE [Suspect]
     Indication: CROHN^S DISEASE
     Dosage: FOR 52 WEEKS??STOP DATE AUG/SEP-2012
     Route: 042
     Dates: start: 20111104, end: 201208

REACTIONS (8)
  - Intestinal resection [Recovering/Resolving]
  - Colon operation [Recovering/Resolving]
  - Transient global amnesia [Recovering/Resolving]
  - Fluid imbalance [Recovering/Resolving]
  - Nausea [Recovering/Resolving]
  - Vomiting [Recovering/Resolving]
  - Diarrhoea [Recovering/Resolving]
  - Blood magnesium abnormal [Recovering/Resolving]
